FAERS Safety Report 9458024 (Version 1)
Quarter: 2013Q3

REPORT INFORMATION
  Report Type: Spontaneous
  Country: IE (occurrence: IE)
  Receive Date: 20130814
  Receipt Date: 20130814
  Transmission Date: 20140515
  Serious: Yes (Other)
  Sender: FDA-Public Use
  Company Number: IE-SANOFI-AVENTIS-2013SA079128

PATIENT
  Age: 17 Year
  Sex: Female

DRUGS (3)
  1. ARAVA [Suspect]
     Indication: RHEUMATOID ARTHRITIS
     Route: 048
     Dates: start: 201304
  2. DIFENE [Concomitant]
     Indication: ANTIINFLAMMATORY THERAPY
     Dosage: FORM: DUAL RELEASE CAPSULE?DAILY DOSE: 75-150 MG
     Route: 048
  3. DIFENE [Concomitant]
     Indication: RHEUMATOID ARTHRITIS
     Dosage: FORM: DUAL RELEASE CAPSULE?DAILY DOSE: 75-150 MG
     Route: 048

REACTIONS (6)
  - Wound secretion [Recovering/Resolving]
  - Mouth ulceration [Recovering/Resolving]
  - Tongue exfoliation [Recovering/Resolving]
  - Skin lesion [Recovering/Resolving]
  - Blister [Recovering/Resolving]
  - Skin exfoliation [Recovering/Resolving]
